FAERS Safety Report 11419188 (Version 4)
Quarter: 2016Q2

REPORT INFORMATION
  Report Type: Report from Study
  Country: GT (occurrence: GT)
  Receive Date: 20150826
  Receipt Date: 20160513
  Transmission Date: 20160815
  Serious: Yes (Other)
  Sender: FDA-Public Use
  Company Number: PHHY2015GT101852

PATIENT
  Age: 48 Year
  Sex: Female
  Weight: 59.1 kg

DRUGS (4)
  1. LYRICA [Concomitant]
     Active Substance: PREGABALIN
     Indication: PRODUCT USED FOR UNKNOWN INDICATION
     Dosage: 150 MG, BID
     Route: 048
  2. GILENYA [Suspect]
     Active Substance: FINGOLIMOD HYDROCHLORIDE
     Indication: MULTIPLE SCLEROSIS
     Dosage: 0.5 MG, QD
     Route: 048
  3. CLONAZEPAM. [Concomitant]
     Active Substance: CLONAZEPAM
     Indication: PRODUCT USED FOR UNKNOWN INDICATION
     Dosage: 2 MG, HS
     Route: 048
  4. LEVOTIROXINA [Concomitant]
     Active Substance: LEVOTHYROXINE SODIUM
     Indication: PRODUCT USED FOR UNKNOWN INDICATION
     Dosage: 75 MCG/ML, QD
     Route: 048

REACTIONS (13)
  - Abdominal adhesions [Unknown]
  - Amnesia [Not Recovered/Not Resolved]
  - Hepatic steatosis [Unknown]
  - Crying [Unknown]
  - Nephrolithiasis [Unknown]
  - Renal pain [Recovering/Resolving]
  - Pain in extremity [Unknown]
  - Burning sensation [Unknown]
  - Liver function test increased [Recovering/Resolving]
  - Multiple sclerosis relapse [Recovered/Resolved]
  - Malaise [Unknown]
  - Memory impairment [Recovering/Resolving]
  - Emotional disorder [Unknown]

NARRATIVE: CASE EVENT DATE: 201506
